FAERS Safety Report 8947904 (Version 2)
Quarter: 2013Q1

REPORT INFORMATION
  Report Type: Spontaneous
  Country: US (occurrence: None)
  Receive Date: 20121127
  Receipt Date: 20121210
  Transmission Date: 20140127
  Serious: Yes (Other)
  Sender: FDA-Public Use
  Company Number: ACO_33073_2012

PATIENT
  Age: 55 Year
  Sex: Female

DRUGS (6)
  1. AMPYRA (DALFAMPRIDINE) TABLET, 10MG [Suspect]
     Indication: PRODUCT USED FOR UNKNOWN INDICATION
     Route: 048
     Dates: start: 20110805, end: 20121114
  2. AVONEX (INTERFERON BETA-1A) [Concomitant]
  3. ZANAFLEX (TIZANIDINE HYDROCHLORIDE) [Concomitant]
  4. VERAPAMIL (VERAPAMIL HYDROCHLORIDE) [Concomitant]
  5. CRESTOR (ROSUVASTATIN CALCIUM) [Concomitant]
  6. LEVOTHYROXINE (LEVOTHYROXINE) [Concomitant]

REACTIONS (2)
  - Periventricular leukomalacia [None]
  - Grand mal convulsion [None]
